FAERS Safety Report 8552836-3 (Version None)
Quarter: 2012Q3

REPORT INFORMATION
  Report Type: 
  Country: None (occurrence: None)
  Receive Date: 20120724
  Receipt Date: 20120724
  Transmission Date: 20120928
  Serious: Yes (Hospitalization)
  Sender: FDA-Public Use
  Company Number: None

PATIENT
  Sex: Female
  Weight: 81 kg

DRUGS (11)
  1. TRAMADOL HCL [Concomitant]
  2. LANSOPRAZOLE [Concomitant]
  3. VITAMIN D [Concomitant]
  4. HERCEPTIN [Suspect]
  5. VANCOMYCIN [Concomitant]
  6. CYPROHEPTADINE HCL [Concomitant]
  7. CARBOPLATIN [Suspect]
  8. ANASTROZOLE [Concomitant]
  9. FISH OIL [Concomitant]
  10. ABRAXANE [Suspect]
  11. ZETIA [Concomitant]

REACTIONS (3)
  - RASH [None]
  - CELLULITIS [None]
  - ABSCESS [None]
